FAERS Safety Report 18349271 (Version 2)
Quarter: 2020Q4

REPORT INFORMATION
  Report Type: Spontaneous
  Country: DE (occurrence: DE)
  Receive Date: 20201006
  Receipt Date: 20201008
  Transmission Date: 20210114
  Serious: Yes (Other)
  Sender: FDA-Public Use
  Company Number: DE-MYLANLABS-2020M1084342

PATIENT
  Sex: Female

DRUGS (2)
  1. CYKLOKAPRON [Suspect]
     Active Substance: TRANEXAMIC ACID
     Indication: COAGULOPATHY
  2. CYKLOKAPRON [Suspect]
     Active Substance: TRANEXAMIC ACID
     Indication: MENORRHAGIA
     Dosage: 1 DOSAGE FORM, CYCLE
     Route: 048
     Dates: start: 202003

REACTIONS (8)
  - Respiratory distress [Unknown]
  - Arrhythmia [Unknown]
  - Muscular weakness [Unknown]
  - Dizziness [Unknown]
  - Blood pressure decreased [Unknown]
  - Presyncope [Unknown]
  - Myopathy [Unknown]
  - Orthostatic intolerance [Unknown]

NARRATIVE: CASE EVENT DATE: 202003
